FAERS Safety Report 11556562 (Version 1)
Quarter: 2015Q3

REPORT INFORMATION
  Report Type: Report from Study
  Country: CA (occurrence: CA)
  Receive Date: 20150925
  Receipt Date: 20150925
  Transmission Date: 20151125
  Serious: Yes (Other)
  Sender: FDA-Public Use
  Company Number: CA-KADMON PHARMACEUTICALS, LLC-KAD201509-003336

PATIENT
  Age: 60 Year
  Sex: Female
  Weight: 48.53 kg

DRUGS (10)
  1. POLYSTYRENE SULFONATE (RESONIUM) [Concomitant]
     Dates: start: 20150511
  2. METOPROLOL [Concomitant]
     Active Substance: METOPROLOL
     Dates: start: 20150408
  3. AMLODIPINE [Concomitant]
     Active Substance: AMLODIPINE BESYLATE
     Dates: start: 20150408
  4. RIBAVIRIN 200 MG TABLETS [Suspect]
     Active Substance: RIBAVIRIN
     Dosage: TABLET
     Route: 048
     Dates: start: 201509
  5. RIBAVIRIN 200 MG TABLETS [Suspect]
     Active Substance: RIBAVIRIN
     Indication: HEPATITIS C
     Route: 048
     Dates: start: 20150811, end: 201509
  6. HOLKIRA PAK [Suspect]
     Active Substance: DASABUVIR\OMBITASVIR\PARITAPREVIR\RITONAVIR
     Indication: HEPATITIS C
     Dosage: 12.5/75/50 MG TABLETS ONCE DAILY AND ONE DASABUVIR 250 MG TABLET TWICE DAILY
     Route: 048
     Dates: start: 20150811
  7. RANITIDINE [Concomitant]
     Active Substance: RANITIDINE\RANITIDINE HYDROCHLORIDE
     Dates: start: 20150408
  8. AMITRIPTYLINE [Concomitant]
     Active Substance: AMITRIPTYLINE
     Dates: start: 20150408
  9. NITRO PATCH [Concomitant]
     Active Substance: NITROGLYCERIN
     Dates: start: 20150401
  10. GABAPENTIN. [Concomitant]
     Active Substance: GABAPENTIN
     Dates: start: 20150601

REACTIONS (1)
  - Haemoglobin abnormal [Unknown]

NARRATIVE: CASE EVENT DATE: 20150904
